FAERS Safety Report 17064864 (Version 1)
Quarter: 2019Q4

REPORT INFORMATION
  Report Type: Spontaneous
  Country: US (occurrence: US)
  Receive Date: 20191122
  Receipt Date: 20191122
  Transmission Date: 20200122
  Serious: No
  Sender: FDA-Public Use
  Company Number: US-GILEAD-2019-0439015

PATIENT
  Age: 60 Year
  Sex: Female

DRUGS (3)
  1. GINGER ROOT [ZINGIBER OFFICINALE ROOT] [Concomitant]
     Indication: VOMITING
  2. VEMLIDY [Suspect]
     Active Substance: TENOFOVIR ALAFENAMIDE FUMARATE
     Indication: PRODUCT USED FOR UNKNOWN INDICATION
     Dosage: UNK
     Route: 065
     Dates: start: 201909
  3. GINGER ROOT [ZINGIBER OFFICINALE ROOT] [Concomitant]
     Indication: FLATULENCE

REACTIONS (4)
  - Disturbance in attention [Not Recovered/Not Resolved]
  - Fatigue [Not Recovered/Not Resolved]
  - Memory impairment [Unknown]
  - Abdominal pain [Not Recovered/Not Resolved]

NARRATIVE: CASE EVENT DATE: 2019
